FAERS Safety Report 7148289-2 (Version None)
Quarter: 2010Q4

REPORT INFORMATION
  Report Type: 
  Country: None (occurrence: None)
  Receive Date: 20101209
  Receipt Date: 20101202
  Transmission Date: 20110411
  Serious: Yes (Hospitalization)
  Sender: FDA-Public Use
  Company Number: CN-SANOFI-AVENTIS-2010SA065962

PATIENT
  Age: 68 Year
  Sex: Male
  Weight: 53 kg

DRUGS (6)
  1. DOCETAXEL [Suspect]
     Route: 041
     Dates: start: 20100920, end: 20100920
  2. DOCETAXEL [Suspect]
     Route: 041
     Dates: start: 20101015, end: 20101015
  3. CISPLATIN [Suspect]
     Route: 042
     Dates: start: 20100920, end: 20100920
  4. CISPLATIN [Suspect]
     Route: 042
     Dates: start: 20101015, end: 20101015
  5. FLUOROURACIL [Suspect]
     Route: 041
     Dates: start: 20100920, end: 20100924
  6. FLUOROURACIL [Suspect]
     Route: 041
     Dates: start: 20101015, end: 20101019

REACTIONS (15)
  - ABDOMINAL DISTENSION [None]
  - ARTERIAL DISORDER [None]
  - BILE DUCT OBSTRUCTION [None]
  - DIARRHOEA [None]
  - GALLBLADDER ENLARGEMENT [None]
  - GALLBLADDER PERFORATION [None]
  - GASTROINTESTINAL OBSTRUCTION [None]
  - HAEMORRHAGIC ASCITES [None]
  - HYPERBILIRUBINAEMIA [None]
  - HYPOPROTEINAEMIA [None]
  - JAUNDICE [None]
  - LIVER INJURY [None]
  - OCULAR ICTERUS [None]
  - PERITONITIS [None]
  - WHITE BLOOD CELL COUNT DECREASED [None]
